FAERS Safety Report 15560245 (Version 1)
Quarter: 2018Q4

REPORT INFORMATION
  Report Type: Spontaneous
  Country: US (occurrence: US)
  Receive Date: 20181029
  Receipt Date: 20181029
  Transmission Date: 20190205
  Serious: No
  Sender: FDA-Public Use
  Company Number: US-TELIGENT, INC-IGIL20180615

PATIENT
  Age: 45 Year
  Sex: Female

DRUGS (1)
  1. CLOBETASOL PROPIONATE (EMOLLIENT) [Suspect]
     Active Substance: CLOBETASOL PROPIONATE
     Indication: SKIN DISORDER
     Dosage: UNKNOWN
     Route: 061
     Dates: start: 20181023

REACTIONS (3)
  - Rash macular [Not Recovered/Not Resolved]
  - Product physical consistency issue [None]
  - Poor quality product administered [None]

NARRATIVE: CASE EVENT DATE: 20181023
